FAERS Safety Report 7370881-0 (Version None)
Quarter: 2011Q1

REPORT INFORMATION
  Report Type: 
  Country: None (occurrence: None)
  Receive Date: 20110324
  Receipt Date: 20110315
  Transmission Date: 20110831
  Serious: No
  Sender: FDA-Public Use
  Company Number: US-BIOGENIDEC-2011BI009900

PATIENT
  Age: 60 Year
  Sex: Female

DRUGS (2)
  1. TYSABRI [Suspect]
     Indication: MULTIPLE SCLEROSIS
     Route: 042
     Dates: start: 20070131
  2. TYSABRI [Suspect]
     Route: 042
     Dates: start: 20050208

REACTIONS (4)
  - BALANCE DISORDER [None]
  - PAIN IN EXTREMITY [None]
  - SENSORY DISTURBANCE [None]
  - PARAESTHESIA [None]
